FAERS Safety Report 5866211-3 (Version None)
Quarter: 2008Q3

REPORT INFORMATION
  Report Type: 
  Country: None (occurrence: None)
  Receive Date: 20080829
  Receipt Date: 20080818
  Transmission Date: 20090109
  Serious: Yes (Other)
  Sender: FDA-Public Use
  Company Number: BR-PFIZER INC-2008069803

PATIENT
  Sex: Female
  Weight: 60 kg

DRUGS (4)
  1. DOSTINEX [Suspect]
     Indication: HYPERPROLACTINAEMIA
     Dosage: TEXT:0.5 MG WEEKLY
     Route: 048
  2. BUPROPION HCL [Concomitant]
     Dates: start: 20080501
  3. PAROXETINE HCL [Concomitant]
     Route: 065
  4. RIVOTRIL [Concomitant]

REACTIONS (17)
  - ANOREXIA [None]
  - ANXIETY [None]
  - DIARRHOEA [None]
  - DIZZINESS [None]
  - HEAD DISCOMFORT [None]
  - HEADACHE [None]
  - HYPOAESTHESIA [None]
  - HYPOTENSION [None]
  - LABYRINTHITIS [None]
  - MUSCLE TIGHTNESS [None]
  - MYALGIA [None]
  - NAUSEA [None]
  - SYNCOPE [None]
  - TREMOR [None]
  - VIRAL INFECTION [None]
  - VISION BLURRED [None]
  - VOMITING [None]
